FAERS Safety Report 14803949 (Version 2)
Quarter: 2018Q2

REPORT INFORMATION
  Report Type: Report from Study
  Country: DE (occurrence: DE)
  Receive Date: 20180425
  Receipt Date: 20180501
  Transmission Date: 20180711
  Serious: Yes (Life-Threatening)
  Sender: FDA-Public Use
  Company Number: DE-ROCHE-221817

PATIENT
  Age: 75 Year
  Sex: Female
  Weight: 69 kg

DRUGS (56)
  1. VESDIL [Suspect]
     Active Substance: RAMIPRIL
     Indication: HYPERTENSION
     Route: 048
  2. CODEINE [Suspect]
     Active Substance: CODEINE
     Indication: COUGH
     Dosage: UNIT DOSE: 15 [DRP]
     Route: 048
  3. HEPARIN [Concomitant]
     Active Substance: HEPARIN SODIUM
     Route: 058
     Dates: start: 19981120, end: 19981122
  4. THIOPENTAL [Concomitant]
     Active Substance: THIOPENTAL
     Indication: GENERAL ANAESTHESIA
     Route: 042
     Dates: start: 19981120, end: 19981120
  5. KALIUMCHLORID [Concomitant]
     Indication: HYPOKALAEMIA
     Route: 042
     Dates: start: 19981120, end: 19981122
  6. DEXAMETHASONE. [Concomitant]
     Active Substance: DEXAMETHASONE
     Indication: PROPHYLAXIS
     Route: 048
     Dates: start: 19981116, end: 19981128
  7. BEPANTHEN CREAM (GERMANY) [Suspect]
     Active Substance: DEXPANTHENOL
     Indication: DRY MOUTH
     Dosage: IRREGULAR DOSAGE.
     Route: 048
     Dates: start: 19981121, end: 19981203
  8. KALIUMCHLORID [Concomitant]
     Route: 048
     Dates: start: 19981121, end: 19981122
  9. PASPERTIN INJECTION [Concomitant]
     Indication: NAUSEA
     Route: 048
     Dates: start: 19981119, end: 19981119
  10. RANITIDIN [Concomitant]
     Active Substance: RANITIDINE HYDROCHLORIDE
     Route: 048
     Dates: start: 19981120, end: 19981121
  11. GLUCOSE [Concomitant]
     Active Substance: DEXTROSE
     Indication: FLUID REPLACEMENT
     Route: 042
     Dates: start: 19981120, end: 19981122
  12. PASPERTIN RETARD [Concomitant]
     Indication: NAUSEA
     Route: 042
     Dates: start: 19981120, end: 19981120
  13. DIAZEPAM. [Suspect]
     Active Substance: DIAZEPAM
     Indication: SEDATION
     Route: 048
     Dates: start: 19981119, end: 19981119
  14. ACC BRAUSETABLETTEN [Suspect]
     Active Substance: ACETYLCYSTEINE
     Indication: PRODUCT USED FOR UNKNOWN INDICATION
     Route: 048
  15. MAGALDRATE [Suspect]
     Active Substance: MAGALDRATE
     Indication: ULCER
     Dosage: IRREGULAR DOSAGE.
     Route: 048
  16. PHENAEMAL [Suspect]
     Active Substance: PHENOBARBITAL
     Indication: PROPHYLAXIS
     Route: 048
     Dates: start: 19981001, end: 19981115
  17. VESDIL [Suspect]
     Active Substance: RAMIPRIL
     Route: 048
  18. PHENHYDAN TABLETS [Suspect]
     Active Substance: PHENYTOIN
     Route: 048
  19. KALINOR (POTASSIUM CHLORIDE) [Concomitant]
     Active Substance: POTASSIUM CHLORIDE
     Indication: HYPOKALAEMIA
     Route: 048
     Dates: start: 19981121, end: 19981122
  20. HEPARIN [Concomitant]
     Active Substance: HEPARIN SODIUM
     Indication: THROMBOSIS PROPHYLAXIS
     Route: 058
     Dates: start: 19981116, end: 19981122
  21. DEPOT-H-INSULIN [Concomitant]
     Indication: HYPERGLYCAEMIA
     Route: 058
     Dates: start: 19981120, end: 19981120
  22. DEHYDROBENZPERIDOL [Concomitant]
     Active Substance: DROPERIDOL
     Indication: GENERAL ANAESTHESIA
     Route: 042
     Dates: start: 19981120, end: 19981120
  23. RANITIDIN [Concomitant]
     Active Substance: RANITIDINE HYDROCHLORIDE
     Indication: ULCER
     Route: 048
     Dates: start: 19981116, end: 19981121
  24. RINGER^S INJECTION [Concomitant]
     Indication: FLUID REPLACEMENT
     Route: 042
     Dates: start: 19981120, end: 19981120
  25. SILOMAT (GERMANY) [Suspect]
     Active Substance: PENTOXYVERINE
     Indication: COUGH
     Route: 048
     Dates: start: 19981128, end: 19981128
  26. ARISTOCHOL KONZENTRAT [Concomitant]
     Active Substance: DIETARY SUPPLEMENT\HERBALS
     Route: 048
  27. SOSTRIL (GERMANY) [Concomitant]
     Indication: ULCER
     Route: 042
     Dates: start: 19981120, end: 19981120
  28. ISOFLURAN [Concomitant]
     Active Substance: ISOFLURANE
     Indication: GENERAL ANAESTHESIA
     Route: 055
     Dates: start: 19981120, end: 19981120
  29. FLUIMICIL [Concomitant]
     Active Substance: ACETYLCYSTEINE
     Indication: PRODUCT USED FOR UNKNOWN INDICATION
     Route: 042
     Dates: start: 19981120, end: 19981122
  30. DILZEM RETARD [Concomitant]
     Active Substance: DILTIAZEM
     Indication: CORONARY ARTERY DISEASE
     Route: 048
  31. FORTECORTIN [Concomitant]
     Active Substance: DEXAMETHASONE
     Indication: PROPHYLAXIS
     Route: 042
     Dates: start: 19981120, end: 19981121
  32. SUFENTA [Concomitant]
     Active Substance: SUFENTANIL CITRATE
     Indication: GENERAL ANAESTHESIA
     Route: 042
     Dates: start: 19981120, end: 19981120
  33. ADALAT [Concomitant]
     Active Substance: NIFEDIPINE
     Indication: HYPERTENSION
     Route: 048
     Dates: start: 19981121, end: 19981121
  34. SILOMAT (GERMANY) [Suspect]
     Active Substance: PENTOXYVERINE
     Indication: COUGH
     Route: 048
     Dates: start: 19981130, end: 19981205
  35. ARISTOCHOL KONZENTRAT [Concomitant]
     Active Substance: DIETARY SUPPLEMENT\HERBALS
     Indication: CONSTIPATION
     Route: 048
  36. ARISTOCHOL KONZENTRAT [Concomitant]
     Route: 048
  37. EBRANTIL [Concomitant]
     Active Substance: URAPIDIL
     Indication: HYPERTENSION
     Route: 042
     Dates: start: 19981120, end: 19981120
  38. PHENHYDAN INJECTION [Suspect]
     Active Substance: PHENYTOIN
     Indication: PROPHYLAXIS
     Route: 042
     Dates: start: 19981120, end: 19981120
  39. NITRAZEPAM [Suspect]
     Active Substance: NITRAZEPAM
     Indication: SEDATION
     Dosage: IRREGULAR DOSAGE FROM 19/NOV/1998 TO 27/NOV/1998.
     Route: 048
     Dates: start: 19981119, end: 19981207
  40. HEPARIN [Concomitant]
     Active Substance: HEPARIN SODIUM
     Route: 058
  41. DOPAMIN [Concomitant]
     Active Substance: DOPAMINE HYDROCHLORIDE
     Route: 042
     Dates: start: 19981120, end: 19981120
  42. PANCURONIUM [Concomitant]
     Active Substance: PANCURONIUM
     Indication: GENERAL ANAESTHESIA
     Route: 042
     Dates: start: 19981120, end: 19981120
  43. MIDAZOLAM [Suspect]
     Active Substance: MIDAZOLAM HYDROCHLORIDE
     Indication: SEDATION
     Route: 048
     Dates: start: 19981119, end: 19981119
  44. MIDAZOLAM [Suspect]
     Active Substance: MIDAZOLAM HYDROCHLORIDE
     Indication: SEDATION
     Route: 042
     Dates: start: 19981120, end: 19981120
  45. NOVALGIN (METAMIZOLE SODIUM) [Suspect]
     Active Substance: METAMIZOLE SODIUM
     Indication: PYREXIA
     Dosage: 20 DRP
     Route: 048
     Dates: start: 19981202, end: 19981202
  46. SILOMAT (GERMANY) [Suspect]
     Active Substance: PENTOXYVERINE
     Indication: COUGH
     Route: 048
     Dates: start: 19981124, end: 19981124
  47. KALIUMCHLORID [Concomitant]
     Route: 048
     Dates: start: 19981121, end: 19981122
  48. ATROPIN [Concomitant]
     Active Substance: ATROPINE
     Indication: ARRHYTHMIA
     Route: 042
     Dates: start: 19981120, end: 19981120
  49. NATRIUMCHLORID [Concomitant]
     Indication: FLUID REPLACEMENT
     Route: 042
     Dates: start: 19981120, end: 19981122
  50. GASTROZEPIN [Concomitant]
     Active Substance: PIRENZEPINE HYDROCHLORIDE
     Indication: ULCER
     Route: 042
     Dates: start: 19981120, end: 19981120
  51. BEPANTHEN CREAM (GERMANY) [Suspect]
     Active Substance: DEXPANTHENOL
     Dosage: IRREGULAR DOSAGE.
     Route: 048
  52. PHENHYDAN TABLETS [Suspect]
     Active Substance: PHENYTOIN
     Indication: PROPHYLAXIS
     Route: 048
     Dates: start: 19981116, end: 19981119
  53. ASPIRIN. [Suspect]
     Active Substance: ASPIRIN
     Indication: CORONARY ARTERY DISEASE
     Route: 048
  54. FENTANYL ^JANSSEN^ [Concomitant]
     Active Substance: FENTANYL
     Indication: GENERAL ANAESTHESIA
     Route: 042
     Dates: start: 19981120, end: 19981120
  55. RANITIDIN [Concomitant]
     Active Substance: RANITIDINE HYDROCHLORIDE
     Route: 048
  56. MEVINACOR [Concomitant]
     Active Substance: LOVASTATIN
     Indication: HYPERCHOLESTEROLAEMIA
     Route: 048

REACTIONS (1)
  - Stevens-Johnson syndrome [Recovering/Resolving]

NARRATIVE: CASE EVENT DATE: 19981207
